APPROVED DRUG PRODUCT: HYDROCODONE BITARTRATE AND IBUPROFEN
Active Ingredient: HYDROCODONE BITARTRATE; IBUPROFEN
Strength: 5MG;200MG
Dosage Form/Route: TABLET;ORAL
Application: A076642 | Product #002
Applicant: AMNEAL PHARMACEUTICALS NY LLC
Approved: Mar 18, 2004 | RLD: No | RS: No | Type: RX